FAERS Safety Report 13681320 (Version 1)
Quarter: 2017Q2

REPORT INFORMATION
  Report Type: Spontaneous
  Country: US (occurrence: US)
  Receive Date: 20170622
  Receipt Date: 20170622
  Transmission Date: 20170830
  Serious: Yes (Life-Threatening, Hospitalization, Disabling, Other)
  Sender: FDA-Public Use
  Company Number: None

PATIENT
  Age: 31 Year
  Sex: Female
  Weight: 65.25 kg

DRUGS (1)
  1. KLONOPIN [Suspect]
     Active Substance: CLONAZEPAM
     Indication: INSOMNIA
     Dosage: AY BEDTIME ORAL
     Route: 048

REACTIONS (19)
  - Anxiety [None]
  - Hallucination, visual [None]
  - Withdrawal syndrome [None]
  - Abnormal behaviour [None]
  - Diarrhoea [None]
  - Depression suicidal [None]
  - Insomnia [None]
  - Memory impairment [None]
  - Agoraphobia [None]
  - Nystagmus [None]
  - Seizure [None]
  - Depression [None]
  - Staphylococcal infection [None]
  - Vaginal infection [None]
  - Anger [None]
  - Cognitive disorder [None]
  - Muscle spasms [None]
  - Nausea [None]
  - Crying [None]

NARRATIVE: CASE EVENT DATE: 20120101
